FAERS Safety Report 7498280 (Version 3)
Quarter: 2013Q4

REPORT INFORMATION
  Report Type: Spontaneous
  Country: US (occurrence: US)
  Receive Date: 20100723
  Receipt Date: 20131220
  Transmission Date: 20140711
  Serious: Yes (Hospitalization, Other)
  Sender: FDA-Public Use
  Company Number: US-BAYER-201028487NA

PATIENT
  Age: 22 Year
  Sex: Female

DRUGS (15)
  1. YAZ [Suspect]
     Indication: ACNE
     Dosage: UNK UNK, UNK
     Route: 048
     Dates: start: 2003, end: 2006
  2. YAZ [Suspect]
     Indication: PREMENSTRUAL SYNDROME
  3. YAZ [Suspect]
     Indication: CONTRACEPTION
  4. YASMIN [Suspect]
     Indication: ACNE
     Dosage: UNK
  5. YASMIN [Suspect]
     Indication: PREMENSTRUAL SYNDROME
  6. YASMIN [Suspect]
     Indication: CONTRACEPTION
  7. CLEOCIN T [Concomitant]
     Dosage: UNK
  8. NORTRIPTYLINE [Concomitant]
     Dosage: UNK
  9. MAXALT [Concomitant]
     Dosage: UNK
  10. RETIN A [Concomitant]
     Dosage: UNK
  11. ZANTAC [Concomitant]
     Dosage: UNK
  12. AMOXICILLIN [Concomitant]
     Dosage: UNK
  13. REGLAN [Concomitant]
     Dosage: 10 MG, 5 TO 5 X DAY
  14. PRILOSEC [Concomitant]
     Dosage: 20 MG, 2 X DAY
  15. IMITREX [Concomitant]
     Dosage: 50, 2 X (TIMES) DAY

REACTIONS (11)
  - Cholelithiasis [None]
  - Cholecystitis chronic [None]
  - Impaired gastric emptying [None]
  - Nausea [None]
  - Vomiting [None]
  - Abdominal rigidity [None]
  - Dizziness [None]
  - Pain [None]
  - Mental disorder [None]
  - Panic attack [None]
  - Mental disorder [None]
